FAERS Safety Report 10261993 (Version 2)
Quarter: 2014Q3

REPORT INFORMATION
  Report Type: Spontaneous
  Country: US (occurrence: US)
  Receive Date: 20140626
  Receipt Date: 20140728
  Transmission Date: 20150326
  Serious: Yes (Death, Hospitalization)
  Sender: FDA-Public Use
  Company Number: US-B.I. PHARMACEUTICALS,INC./RIDGEFIELD-2014-BI-28631BP

PATIENT
  Age: 72 Year
  Sex: Female

DRUGS (8)
  1. BENAZEPRI [Concomitant]
     Route: 048
  2. ATROVENT [Suspect]
     Active Substance: IPRATROPIUM BROMIDE
     Indication: PRODUCT USED FOR UNKNOWN INDICATION
     Route: 055
  3. ATENOLOL. [Concomitant]
     Active Substance: ATENOLOL
     Route: 048
  4. TERAZOSIN [Concomitant]
     Active Substance: TERAZOSIN\TERAZOSIN HYDROCHLORIDE
     Route: 048
  5. SPIRIVA [Suspect]
     Active Substance: TIOTROPIUM BROMIDE MONOHYDRATE
     Indication: CHRONIC OBSTRUCTIVE PULMONARY DISEASE
     Dosage: 18 MCG
     Route: 055
     Dates: start: 201208
  6. ADVAIR HFA [Concomitant]
     Active Substance: FLUTICASONE PROPIONATE\SALMETEROL XINAFOATE
     Route: 055
  7. ASPIRIN. [Concomitant]
     Active Substance: ASPIRIN
     Route: 048
  8. DICLOFENAC SODIUM. [Concomitant]
     Active Substance: DICLOFENAC SODIUM
     Route: 061

REACTIONS (3)
  - Haemorrhage intracranial [Fatal]
  - Arthritis [Recovered/Resolved]
  - Hypertension [Fatal]

NARRATIVE: CASE EVENT DATE: 20140528
